FAERS Safety Report 12657627 (Version 1)
Quarter: 2016Q3

REPORT INFORMATION
  Report Type: Spontaneous
  Country: ZA (occurrence: ZA)
  Receive Date: 20160816
  Receipt Date: 20160816
  Transmission Date: 20161109
  Serious: Yes (Hospitalization, Other)
  Sender: FDA-Public Use
  Company Number: ZA-PFIZER INC-2016386732

PATIENT
  Age: 40 Year
  Sex: Female

DRUGS (13)
  1. TRAMAHEXAL [Concomitant]
     Active Substance: TRAMADOL HYDROCHLORIDE
     Dosage: UNK
  2. CLOPIWIN [Concomitant]
     Active Substance: CLOPIDOGREL BISULFATE
     Dosage: 75 MG, UNK
  3. PATANOL [Concomitant]
     Active Substance: OLOPATADINE HYDROCHLORIDE
     Dosage: EYE DROPS
  4. DISIPAL [Concomitant]
     Active Substance: ORPHENADRINE HYDROCHLORIDE
     Dosage: 50 MG, UNK
  5. NORFLEX CO [Concomitant]
     Dosage: UNK
  6. ADCO DOL [Concomitant]
     Dosage: UNK
  7. TREPILINE /00002201/ [Concomitant]
     Active Substance: AMITRIPTYLINE
     Dosage: UNK
  8. BRAZEPAM [Concomitant]
     Dosage: UNK
  9. SERTRA [Suspect]
     Active Substance: SERTRALINE HYDROCHLORIDE
     Indication: DEPRESSION
     Dosage: 50 MG, UNK
  10. STILPANE /01152401/ [Suspect]
     Active Substance: ACETAMINOPHEN\CAFFEINE\CODEINE PHOSPHATE\MEPROBAMATE
     Dosage: UNK
  11. ELTROXIN [Concomitant]
     Active Substance: LEVOTHYROXINE
     Dosage: UNK
  12. FEMODENE [Concomitant]
     Active Substance: ETHINYL ESTRADIOL\GESTODENE
     Dosage: UNK
  13. MYPAID [Concomitant]
     Dosage: UNK

REACTIONS (5)
  - Syncope [Recovered/Resolved]
  - Drug screen positive [Unknown]
  - Amnesia [Unknown]
  - Cerebrovascular accident [Recovered/Resolved]
  - Coma [Recovered/Resolved]

NARRATIVE: CASE EVENT DATE: 2015
